FAERS Safety Report 12094642 (Version 1)
Quarter: 2016Q1

REPORT INFORMATION
  Report Type: Spontaneous
  Country: US (occurrence: US)
  Receive Date: 20160219
  Receipt Date: 20160219
  Transmission Date: 20160526
  Serious: Yes (Hospitalization, Other)
  Sender: FDA-Public Use
  Company Number: US-SA-2016SA027067

PATIENT
  Age: 50 Year
  Sex: Female

DRUGS (2)
  1. APIDRA SOLOSTAR [Suspect]
     Active Substance: INSULIN GLULISINE
     Indication: DIABETES MELLITUS
     Dosage: FREQUENCY=SLIDING SCALE DOSE:25 UNIT(S)
     Route: 065
  2. SOLOSTAR [Concomitant]
     Active Substance: DEVICE
     Indication: DIABETES MELLITUS

REACTIONS (8)
  - Blood glucose increased [Unknown]
  - Localised infection [Unknown]
  - Neuropathy peripheral [Unknown]
  - Foot fracture [Unknown]
  - Gangrene [Unknown]
  - Condition aggravated [Unknown]
  - Skin ulcer [Unknown]
  - Cerebrovascular accident [Unknown]
